FAERS Safety Report 8987710 (Version 1)
Quarter: 2012Q4

REPORT INFORMATION
  Report Type: 
  Country: IT (occurrence: IT)
  Receive Date: 20121227
  Receipt Date: 20121227
  Transmission Date: 20130627
  Serious: Yes (Hospitalization)
  Sender: FDA-Public Use
  Company Number: PHHY2012IT119975

PATIENT
  Sex: Female

DRUGS (5)
  1. ATENOLOL [Suspect]
     Indication: HYPERTENSION
     Dosage: 3 DF, UNK
     Route: 048
     Dates: start: 20120731, end: 20120801
  2. FEMARA [Concomitant]
  3. ZOLOFT [Concomitant]
  4. METFORMIN [Concomitant]
  5. MIRTAZAPINE [Concomitant]

REACTIONS (5)
  - Tremor [Recovered/Resolved]
  - Vertigo [Recovered/Resolved]
  - Bradycardia [Recovered/Resolved]
  - Hypotension [Recovered/Resolved]
  - Nausea [Recovered/Resolved]
